FAERS Safety Report 5792272-6 (Version None)
Quarter: 2008Q2

REPORT INFORMATION
  Report Type: 
  Country: None (occurrence: None)
  Receive Date: 20080626
  Receipt Date: 20080618
  Transmission Date: 20081010
  Serious: Yes (Hospitalization)
  Sender: FDA-Public Use
  Company Number: US-ELI_LILLY_AND_COMPANY-US200806004180

PATIENT
  Sex: Female

DRUGS (3)
  1. HUMULIN 70/30 [Suspect]
     Dosage: 20 U, UNK
  2. HUMULIN 70/30 [Suspect]
     Dosage: 30 U, UNK
  3. HUMULIN 70/30 [Suspect]
     Dosage: 25 U, UNK

REACTIONS (2)
  - BLOOD GLUCOSE DECREASED [None]
  - VASCULAR GRAFT [None]
